FAERS Safety Report 25844973 (Version 2)
Quarter: 2025Q3

REPORT INFORMATION
  Report Type: Spontaneous
  Country: JP (occurrence: JP)
  Receive Date: 20250925
  Receipt Date: 20250926
  Transmission Date: 20251020
  Serious: Yes (Other)
  Sender: IDORSIA PHARMACEUTICALS
  Company Number: JP-IDORSIA-011811-2025-JP

PATIENT
  Age: 6 Decade
  Sex: Male

DRUGS (2)
  1. QUVIVIQ [Suspect]
     Active Substance: DARIDOREXANT
     Indication: Product used for unknown indication
     Route: 048
  2. LULICONAZOLE [Concomitant]
     Active Substance: LULICONAZOLE

REACTIONS (1)
  - Narcolepsy [Unknown]
